FAERS Safety Report 18073820 (Version 1)
Quarter: 2020Q3

REPORT INFORMATION
  Report Type: Spontaneous
  Country: GB (occurrence: GB)
  Receive Date: 20200727
  Receipt Date: 20200727
  Transmission Date: 20201103
  Serious: Yes (Disabling)
  Sender: FDA-Public Use
  Company Number: GB-PFIZER INC-2020276277

PATIENT
  Age: 47 Year
  Sex: Male

DRUGS (6)
  1. LEVETIRACETAM. [Suspect]
     Active Substance: LEVETIRACETAM
     Indication: SEIZURE
     Dosage: 500 MG, 1X/DAY
  2. CARBAMAZEPINE. [Interacting]
     Active Substance: CARBAMAZEPINE
     Dosage: 600 MG, 2X/DAY
  3. CARBAMAZEPINE. [Interacting]
     Active Substance: CARBAMAZEPINE
     Indication: SEIZURE
     Dosage: 800 MG, 2X/DAY (CONTROL?RELEASE)
  4. LAMOTRIGINE. [Concomitant]
     Active Substance: LAMOTRIGINE
     Indication: SEIZURE
     Dosage: 100 MG, 2X/DAY
  5. SODIUM VALPROATE [Concomitant]
     Active Substance: VALPROATE SODIUM
     Indication: SEIZURE
     Dosage: 700 MG, 2X/DAY
  6. LEVETIRACETAM. [Interacting]
     Active Substance: LEVETIRACETAM
     Dosage: 1000 MG, 2X/DAY

REACTIONS (4)
  - Drug interaction [Unknown]
  - Ataxia [Recovered/Resolved]
  - Nystagmus [Recovered/Resolved]
  - Toxicity to various agents [Unknown]
